FAERS Safety Report 8345291-X (Version None)
Quarter: 2012Q2

REPORT INFORMATION
  Report Type: 
  Country: None (occurrence: None)
  Receive Date: 20120504
  Receipt Date: 20120423
  Transmission Date: 20120825
  Serious: Yes (Disabling)
  Sender: FDA-Public Use
  Company Number: 1274418

PATIENT
  Age: 92 Year
  Sex: Female

DRUGS (2)
  1. ENOXAPARIN [Suspect]
     Indication: THROMBOSIS PROPHYLAXIS
     Dosage: 40 MG, SUBCUTANEOUS
     Route: 058
  2. HEPARIN SODIUM [Suspect]
     Indication: AORTIC BYPASS
     Dosage: 5000 IU, INTRAVENOUS (NOT OTHERWISE SPECIFIED)
     Route: 042

REACTIONS (7)
  - FEMORAL ARTERY OCCLUSION [None]
  - VASCULAR GRAFT [None]
  - TOE AMPUTATION [None]
  - HEPARIN-INDUCED THROMBOCYTOPENIA [None]
  - DRY GANGRENE [None]
  - BONE DISORDER [None]
  - PERIPHERAL ARTERIAL OCCLUSIVE DISEASE [None]
